FAERS Safety Report 4649714-9 (Version None)
Quarter: 2005Q2

REPORT INFORMATION
  Report Type: 
  Country: None (occurrence: None)
  Receive Date: 20050427
  Receipt Date: 20050406
  Transmission Date: 20051028
  Serious: Yes (Hospitalization)
  Sender: FDA-Public Use
  Company Number: US_0504115335

PATIENT
  Age: 70 Year
  Sex: Male
  Weight: 90 kg

DRUGS (7)
  1. ALIMTA [Suspect]
     Indication: NON-SMALL CELL LUNG CANCER
     Dosage: 1000 MG
  2. ATENOLOL [Concomitant]
  3. COUMADIN [Concomitant]
  4. FOLIC ACID [Concomitant]
  5. DIGOXIN [Concomitant]
  6. VERAPAMIL [Concomitant]
  7. VITAMIN B-12 [Concomitant]

REACTIONS (4)
  - ATRIAL FLUTTER [None]
  - CARDIAC FIBRILLATION [None]
  - RESPIRATORY FAILURE [None]
  - SUPRAVENTRICULAR TACHYCARDIA [None]
